FAERS Safety Report 8311845-X (Version None)
Quarter: 2012Q2

REPORT INFORMATION
  Report Type: 
  Country: None (occurrence: None)
  Receive Date: 20120425
  Receipt Date: 20120420
  Transmission Date: 20120825
  Serious: Yes (Other)
  Sender: FDA-Public Use
  Company Number: US-PFIZER INC-2012072401

PATIENT
  Sex: Female
  Weight: 70 kg

DRUGS (3)
  1. LYRICA [Suspect]
     Indication: NEURALGIA
     Dosage: UNK
     Route: 048
  2. LYRICA [Suspect]
     Indication: FIBROMYALGIA
     Dosage: 100 MG, 3X/DAY
  3. LYRICA [Suspect]
     Indication: ANXIETY
     Dosage: 100 MG, 2X/DAY

REACTIONS (8)
  - ANXIETY [None]
  - THERAPEUTIC RESPONSE UNEXPECTED [None]
  - EPINEPHRINE ABNORMAL [None]
  - ADDISON'S DISEASE [None]
  - PAIN [None]
  - FEELING ABNORMAL [None]
  - SLEEP DISORDER [None]
  - INSOMNIA [None]
